FAERS Safety Report 9046902 (Version 2)
Quarter: 2013Q1

REPORT INFORMATION
  Report Type: Spontaneous
  Country: IE (occurrence: IE)
  Receive Date: 20130204
  Receipt Date: 20130221
  Transmission Date: 20140127
  Serious: Yes (Other)
  Sender: FDA-Public Use
  Company Number: IE-JNJFOC-20130114050

PATIENT
  Age: 52 None
  Sex: Female

DRUGS (9)
  1. XARELTO [Suspect]
     Indication: HIP ARTHROPLASTY
     Route: 048
  2. XARELTO [Suspect]
     Indication: HIP ARTHROPLASTY
     Route: 048
     Dates: end: 20121214
  3. XARELTO [Suspect]
     Indication: THROMBOSIS PROPHYLAXIS
     Route: 048
  4. XARELTO [Suspect]
     Indication: THROMBOSIS PROPHYLAXIS
     Route: 048
     Dates: end: 20121214
  5. VENTOLIN [Concomitant]
     Route: 065
  6. BECOTIDE [Concomitant]
     Route: 065
  7. EVENING PRIMROSE OIL [Concomitant]
     Route: 065
  8. ANTIDEPRESSANTS [Concomitant]
     Route: 065
  9. PARACETAMOL [Concomitant]
     Route: 065

REACTIONS (2)
  - Deep vein thrombosis [Unknown]
  - Drug ineffective [Unknown]
